FAERS Safety Report 21582300 (Version 2)
Quarter: 2022Q4

REPORT INFORMATION
  Report Type: Spontaneous
  Country: US (occurrence: US)
  Receive Date: 20221111
  Receipt Date: 20221209
  Transmission Date: 20230112
  Serious: No
  Sender: FDA-Public Use
  Company Number: US-UNITED THERAPEUTICS-UNT-2022-026996

PATIENT
  Sex: Female
  Weight: 40.091 kg

DRUGS (4)
  1. REMODULIN [Suspect]
     Active Substance: TREPROSTINIL
     Indication: Pulmonary arterial hypertension
     Dosage: UNK, CONTINUING
     Route: 058
     Dates: start: 20221028
  2. REMODULIN [Suspect]
     Active Substance: TREPROSTINIL
     Dosage: 0.017 ?G/KG, CONTINUING (SELF FILL CASSETTE WITH 1.7 ML; PUMP RATE OF 16 MCL PER HOUR)
     Route: 058
     Dates: start: 2022
  3. OPSUMIT [Concomitant]
     Active Substance: MACITENTAN
     Indication: Product used for unknown indication
     Dosage: UNK
     Route: 065
  4. SILDENAFIL [Concomitant]
     Active Substance: SILDENAFIL
     Indication: Product used for unknown indication
     Dosage: UNK
     Route: 065

REACTIONS (2)
  - Oxygen saturation decreased [Unknown]
  - Flushing [Unknown]

NARRATIVE: CASE EVENT DATE: 20220101
